FAERS Safety Report 6051933-4 (Version None)
Quarter: 2009Q1

REPORT INFORMATION
  Report Type: 
  Country: None (occurrence: None)
  Receive Date: 20090122
  Receipt Date: 20090122
  Transmission Date: 20090719
  Serious: No
  Sender: FDA-Public Use
  Company Number: None

PATIENT
  Age: 49 Year
  Sex: Male
  Weight: 77.1115 kg

DRUGS (3)
  1. HEPARIN [Suspect]
     Dosage: 500 U Q12 IV
     Route: 042
     Dates: start: 20090116, end: 20090121
  2. NS [Concomitant]
  3. VANCOMYCIN [Concomitant]

REACTIONS (5)
  - DYSARTHRIA [None]
  - HYPOAESTHESIA [None]
  - HYPOKINESIA [None]
  - INFUSION RELATED REACTION [None]
  - PARAESTHESIA [None]
